FAERS Safety Report 10460857 (Version 2)
Quarter: 2014Q3

REPORT INFORMATION
  Report Type: Spontaneous
  Country: GB (occurrence: GB)
  Receive Date: 20140918
  Receipt Date: 20140918
  Transmission Date: 20150326
  Serious: Yes (Other)
  Sender: FDA-Public Use
  Company Number: GB-AUROBINDO-AUR-APL-2014-09147

PATIENT
  Age: 29 Year
  Sex: Male
  Weight: 111 kg

DRUGS (11)
  1. RIBAVIRIN. [Suspect]
     Active Substance: RIBAVIRIN
     Indication: CHRONIC HEPATITIS C
     Dosage: 1400 MG, ONCE A DAY
     Route: 065
     Dates: start: 20140513
  2. LORATADINE. [Concomitant]
     Active Substance: LORATADINE
     Indication: PRURITUS
     Dosage: 10 MG, ONCE A DAY
     Route: 048
     Dates: start: 20140708, end: 20140725
  3. INCIVO [Suspect]
     Active Substance: TELAPREVIR
     Indication: CHRONIC HEPATITIS C
     Dosage: 1125 MG, TWO TIMES A DAY
     Route: 048
     Dates: start: 20140513, end: 20140805
  4. INTERFERON NOS [Suspect]
     Active Substance: INTERFERON
     Indication: CHRONIC HEPATITIS C
     Dosage: 150 MCI, EVERY WEEK
     Route: 065
     Dates: start: 20140513
  5. E45 [Concomitant]
     Indication: PROPHYLAXIS
     Dosage: UNK, TWO TIMES A DAY
     Route: 065
     Dates: start: 20140513, end: 20140519
  6. HYDROXYZINE [Concomitant]
     Active Substance: HYDROXYZINE\HYDROXYZINE HYDROCHLORIDE
     Indication: PRURITUS
     Dosage: 25 MG, ONCE A DAY
     Route: 048
     Dates: start: 20140725, end: 20140811
  7. IOCANLIDIC ACID [Concomitant]
     Indication: RASH
     Dosage: UNK
     Route: 065
  8. CETRIZINE [Concomitant]
     Active Substance: CETIRIZINE HYDROCHLORIDE
     Indication: PRURITUS
     Dosage: 10 MG, ONCE A DAY
     Route: 048
     Dates: start: 20140627, end: 20140708
  9. METHANOL [Concomitant]
     Active Substance: METHYL ALCOHOL
     Indication: PRURITUS
  10. PARACETAMOL [Concomitant]
     Active Substance: ACETAMINOPHEN
     Indication: PYREXIA
     Dosage: UNK
     Route: 065
     Dates: start: 20140513
  11. METHANOL [Concomitant]
     Active Substance: METHYL ALCOHOL
     Indication: DRY SKIN
     Dosage: UNK
     Route: 061
     Dates: start: 20140517

REACTIONS (7)
  - Erythema [Recovered/Resolved]
  - Skin discolouration [Recovering/Resolving]
  - Dry skin [Recovered/Resolved]
  - Purulent discharge [Recovered/Resolved]
  - Urticaria [Recovered/Resolved]
  - Rash pruritic [Recovering/Resolving]
  - Condition aggravated [Recovered/Resolved]

NARRATIVE: CASE EVENT DATE: 20140519
